FAERS Safety Report 15844257 (Version 1)
Quarter: 2019Q1

REPORT INFORMATION
  Report Type: Report from Study
  Country: CA (occurrence: CA)
  Receive Date: 20190118
  Receipt Date: 20190118
  Transmission Date: 20190417
  Serious: Yes (Other)
  Sender: FDA-Public Use
  Company Number: CA-PFIZER INC-2019022483

PATIENT

DRUGS (8)
  1. CYCLOPHOSPHAMIDE. [Suspect]
     Active Substance: CYCLOPHOSPHAMIDE
     Indication: MANTLE CELL LYMPHOMA
     Dosage: UNK, CYCLIC (FIRST-LINE INDUCTION THERAPY, 6 CYCLES)
  2. CYCLOPHOSPHAMIDE. [Suspect]
     Active Substance: CYCLOPHOSPHAMIDE
     Dosage: 2000 MG/M2, DAY 1
  3. PREDNISONE. [Suspect]
     Active Substance: PREDNISONE
     Indication: MANTLE CELL LYMPHOMA
     Dosage: UNK, CYCLIC (FIRST-LINE INDUCTION THERAPY, 6 CYCLES)
  4. FILGRASTIM [Concomitant]
     Active Substance: FILGRASTIM
     Indication: MANTLE CELL LYMPHOMA
     Dosage: 10 UG/KG, DAILY (STARTING ON DAY 6)
  5. VINCRISTINE SULFATE. [Suspect]
     Active Substance: VINCRISTINE SULFATE
     Indication: MANTLE CELL LYMPHOMA
     Dosage: UNK, CYCLIC (FIRST-LINE INDUCTION THERAPY, 6 CYCLES)
  6. ETOPOSIDE. [Concomitant]
     Active Substance: ETOPOSIDE
     Indication: MANTLE CELL LYMPHOMA
     Dosage: 200 MG/M2, UNK (DAY 1-3)
  7. DOXORUBICIN HCL [Suspect]
     Active Substance: DOXORUBICIN HYDROCHLORIDE
     Indication: MANTLE CELL LYMPHOMA
     Dosage: UNK, CYCLIC (FIRST-LINE INDUCTION THERAPY, 6 CYCLES)
  8. RITUXIMAB. [Suspect]
     Active Substance: RITUXIMAB
     Indication: MANTLE CELL LYMPHOMA
     Dosage: 375 MG/M2, WEEKLY (WEEKLY FOR FOUR DOSES AT 3 AND 9 MONTHS, OR ONCE EVERY 3 MONTHS FOR EIGHT DOSES)

REACTIONS (1)
  - Renal impairment [Unknown]
